FAERS Safety Report 19628038 (Version 2)
Quarter: 2021Q3

REPORT INFORMATION
  Report Type: Spontaneous
  Country: GB (occurrence: GB)
  Receive Date: 20210729
  Receipt Date: 20210730
  Transmission Date: 20211014
  Serious: Yes (Death, Life-Threatening, Hospitalization, Other)
  Sender: FDA-Public Use
  Company Number: GB-MYLANLABS-2021M1045235

PATIENT
  Sex: Male

DRUGS (5)
  1. OXYCODONE HYDROCHLORIDE. [Suspect]
     Active Substance: OXYCODONE HYDROCHLORIDE
     Indication: PRODUCT USED FOR UNKNOWN INDICATION
     Dosage: 4 MILLILITER, Q4H (OXYCODONE HYDROCHLORIDE 5ML EVERY 4 HOURS)
     Dates: start: 20210626, end: 20210627
  2. SANDOSTATIN LAR DEPOT [Suspect]
     Active Substance: OCTREOTIDE ACETATE
     Indication: NEUROENDOCRINE TUMOUR
     Dosage: 30 MILLIGRAM, Q3W (SANDOSTATIN 30 MG (MILLIGRAM) 3 WEEKLY)
     Route: 030
  3. TRAMADOL. [Suspect]
     Active Substance: TRAMADOL
     Indication: PRODUCT USED FOR UNKNOWN INDICATION
     Dosage: 2 DOSAGE FORM (2 TRAMADOL AS ADVISED BY GP)
  4. DEXAMETHASONE. [Suspect]
     Active Substance: DEXAMETHASONE
     Indication: PRODUCT USED FOR UNKNOWN INDICATION
     Dosage: 4 MILLIGRAM, QD (DEXAMETHASONE 4MG ONCE A DAY)
     Dates: start: 20210626
  5. OMEPRAZOLE                         /00661202/ [Suspect]
     Active Substance: OMEPRAZOLE SODIUM
     Indication: PRODUCT USED FOR UNKNOWN INDICATION
     Dosage: 20 MILLIGRAM, QD (OMEPRAZOLE 20MG ONCE A DAY)
     Dates: start: 20210626

REACTIONS (8)
  - General physical health deterioration [Fatal]
  - Renal disorder [Fatal]
  - Cerebrovascular accident [Unknown]
  - Circulatory collapse [Fatal]
  - Dysarthria [Unknown]
  - Arthralgia [Unknown]
  - Erythema [Unknown]
  - Seizure [Fatal]

NARRATIVE: CASE EVENT DATE: 20210626
